FAERS Safety Report 8132472-3 (Version None)
Quarter: 2012Q1

REPORT INFORMATION
  Report Type: 
  Country: None (occurrence: None)
  Receive Date: 20120103
  Receipt Date: 20111005
  Transmission Date: 20120608
  Serious: No
  Sender: FDA-Public Use
  Company Number: AE-2011-001631

PATIENT
  Age: 54 Year
  Sex: Male
  Weight: 87.0906 kg

DRUGS (8)
  1. CELEXA [Concomitant]
  2. RIBAVIRIN [Concomitant]
  3. LIDEX [Concomitant]
  4. VITAMIN (VITAMINS) [Concomitant]
  5. INCIVEK [Suspect]
     Dosage: 2250 MG (750 MG,3 IN 1 D),ORAL
     Route: 048
     Dates: start: 20110822
  6. PEGASYS [Concomitant]
  7. FISH OIL (FISH OIL) [Concomitant]
  8. OMEPRAZOLE [Concomitant]

REACTIONS (2)
  - NEUTROPENIA [None]
  - RESPIRATORY RATE INCREASED [None]
